FAERS Safety Report 8476726-X (Version None)
Quarter: 2012Q2

REPORT INFORMATION
  Report Type: 
  Country: None (occurrence: None)
  Receive Date: 20120628
  Receipt Date: 20120620
  Transmission Date: 20120825
  Serious: Yes (Other)
  Sender: FDA-Public Use
  Company Number: FR-ABBOTT-11P-056-0840613-00

PATIENT
  Sex: Male
  Weight: 78 kg

DRUGS (4)
  1. HUMIRA [Suspect]
     Route: 058
     Dates: end: 20101210
  2. UREA [Concomitant]
     Indication: PSORIASIS
     Dosage: 1 APPLICATION
     Dates: start: 20110111
  3. HUMIRA [Suspect]
     Indication: PSORIASIS
     Route: 058
     Dates: start: 20100708, end: 20101210
  4. LOCAPRED [Concomitant]
     Indication: PSORIASIS
     Dosage: 2 APPLICATION
     Dates: start: 20110111

REACTIONS (1)
  - MALIGNANT MELANOMA [None]
